FAERS Safety Report 7717359-X (Version None)
Quarter: 2011Q3

REPORT INFORMATION
  Report Type: 
  Country: None (occurrence: None)
  Receive Date: 20110830
  Receipt Date: 20110823
  Transmission Date: 20111222
  Serious: Yes (Hospitalization)
  Sender: FDA-Public Use
  Company Number: IE-BAYER-2011-012714

PATIENT
  Age: 55 Year
  Sex: Male

DRUGS (2)
  1. SORAFENIB (RAF KINASE INHIBITOR) [Suspect]
     Indication: THYROID CANCER METASTATIC
     Dosage: 400 MG, QOD
     Route: 048
     Dates: start: 20101223, end: 20110207
  2. DEXAMETHASONE [Concomitant]
     Indication: THYROID CANCER METASTATIC
     Dosage: 2 MG, BID

REACTIONS (5)
  - DECREASED APPETITE [None]
  - INSOMNIA [None]
  - DIARRHOEA [None]
  - WEIGHT DECREASED [None]
  - FATIGUE [None]
